FAERS Safety Report 5656163-3 (Version None)
Quarter: 2008Q1

REPORT INFORMATION
  Report Type: 
  Country: None (occurrence: None)
  Receive Date: 20080305
  Receipt Date: 20080220
  Transmission Date: 20080703
  Serious: Yes (Death)
  Sender: FDA-Public Use
  Company Number: 1-15805209

PATIENT
  Sex: Male
  Weight: 38.5557 kg

DRUGS (2)
  1. FENTANYL [Suspect]
     Indication: CANCER PAIN
     Dosage: 100 MCG/HR EVERY 24 HR, TRANSDERMAL
     Route: 062
     Dates: start: 20080101, end: 20080220
  2. MYLAN FENTANYL 75 MCG/HR [Suspect]
     Indication: CANCER PAIN
     Dosage: 75 MCG/HR, TRANSDERMAL
     Route: 062
     Dates: end: 20080220

REACTIONS (4)
  - COMA [None]
  - DRUG INEFFECTIVE [None]
  - NEOPLASM MALIGNANT [None]
  - RESPIRATORY ARREST [None]
